FAERS Safety Report 6064755-5 (Version None)
Quarter: 2009Q1

REPORT INFORMATION
  Report Type: 
  Country: None (occurrence: None)
  Receive Date: 20090204
  Receipt Date: 20081013
  Transmission Date: 20090719
  Serious: No
  Sender: FDA-Public Use
  Company Number: A0751585A

PATIENT
  Age: 40 Year
  Sex: Female

DRUGS (8)
  1. ARIXTRA [Suspect]
     Indication: PULMONARY EMBOLISM
     Dosage: 7.5MG PER DAY
     Route: 058
     Dates: start: 20080918
  2. METOPROLOL TARTRATE [Concomitant]
  3. PROZAC [Concomitant]
  4. ENALAPRIL MALEATE [Concomitant]
  5. HYDROCHLOROTHIAZIDE [Concomitant]
  6. SYNTHROID [Concomitant]
  7. XANAX [Concomitant]
  8. BUSPAR [Concomitant]

REACTIONS (3)
  - CONTUSION [None]
  - INJECTION SITE INDURATION [None]
  - INJECTION SITE SWELLING [None]
